FAERS Safety Report 4851863-7 (Version None)
Quarter: 2005Q4

REPORT INFORMATION
  Report Type: 
  Country: None (occurrence: None)
  Receive Date: 20051209
  Receipt Date: 20051129
  Transmission Date: 20060501
  Serious: Yes (Disabling)
  Sender: FDA-Public Use
  Company Number: 050920-0000753

PATIENT
  Age: 32 Year
  Sex: Female

DRUGS (4)
  1. TRANXENE [Suspect]
     Indication: DRUG USE FOR UNKNOWN INDICATION
     Dosage: 50 MG; QD; PO
     Route: 048
     Dates: start: 20040201
  2. INIPOMP (PANTOPRAZOLE) [Suspect]
     Indication: DRUG USE FOR UNKNOWN INDICATION
     Dosage: PO
     Route: 048
  3. METHOTREXATE [Suspect]
     Indication: CROHN'S DISEASE
     Dosage: 2.5 MG; QW; PO
     Route: 048
     Dates: start: 20040201
  4. PAROXETINE HCL [Suspect]
     Indication: DRUG USE FOR UNKNOWN INDICATION
     Dosage: PO
     Route: 048

REACTIONS (2)
  - VISUAL ACUITY REDUCED [None]
  - VISUAL FIELD DEFECT [None]
